FAERS Safety Report 4620834-8 (Version None)
Quarter: 2005Q1

REPORT INFORMATION
  Report Type: 
  Country: None (occurrence: None)
  Receive Date: 20050325
  Receipt Date: 20050311
  Transmission Date: 20050727
  Serious: No
  Sender: FDA-Public Use
  Company Number: 30574

PATIENT
  Age: 68 Year
  Sex: Female

DRUGS (1)
  1. CYCLOGYL [Suspect]

REACTIONS (10)
  - ANTICHOLINERGIC SYNDROME [None]
  - CONFUSIONAL STATE [None]
  - DISTURBANCE IN ATTENTION [None]
  - DRUG TOXICITY [None]
  - GRAND MAL CONVULSION [None]
  - MEDICATION ERROR [None]
  - MUSCLE SPASTICITY [None]
  - MYOCLONUS [None]
  - PYREXIA [None]
  - TREMOR [None]
